FAERS Safety Report 4650520-X (Version None)
Quarter: 2005Q2

REPORT INFORMATION
  Report Type: 
  Country: None (occurrence: None)
  Receive Date: 20050502
  Receipt Date: 20050425
  Transmission Date: 20051028
  Serious: Yes (Death, Life-Threatening)
  Sender: FDA-Public Use
  Company Number: US-MERCK-0504USA04399

PATIENT
  Age: 60 Year
  Sex: Male

DRUGS (1)
  1. PRINZIDE [Suspect]
     Indication: HYPERTENSION
     Route: 048
     Dates: start: 20000601

REACTIONS (2)
  - ANGIONEUROTIC OEDEMA [None]
  - DEATH [None]
